FAERS Safety Report 7547966 (Version 2)
Quarter: 2013Q1

REPORT INFORMATION
  Report Type: Spontaneous
  Country: PL (occurrence: PL)
  Receive Date: 20100820
  Receipt Date: 20130227
  Transmission Date: 20140127
  Serious: Yes (Other)
  Sender: FDA-Public Use
  Company Number: PL-CELGENEUS-129-21880-10080476

PATIENT
  Sex: Male
  Weight: 68 kg

DRUGS (3)
  1. REVLIMID [Suspect]
     Indication: PLASMA CELL MYELOMA
     Route: 048
     Dates: start: 201007
  2. REVLIMID [Suspect]
     Route: 048
  3. TALIZER [Suspect]
     Indication: PLASMA CELL MYELOMA
     Route: 065

REACTIONS (11)
  - Ageusia [Recovered/Resolved]
  - Decreased appetite [Recovered/Resolved]
  - Granulocytopenia [Recovered/Resolved]
  - Neuropathy peripheral [Recovering/Resolving]
  - Pancytopenia [Unknown]
  - Weight decreased [Recovered/Resolved]
  - Dysphonia [Unknown]
  - Constipation [Recovered/Resolved]
  - Abdominal pain [Recovered/Resolved]
  - Dizziness [Recovered/Resolved]
  - Malaise [Recovered/Resolved]
